FAERS Safety Report 10718044 (Version 1)
Quarter: 2015Q1

REPORT INFORMATION
  Report Type: Spontaneous
  Country: DE (occurrence: DE)
  Receive Date: 20150117
  Receipt Date: 20150117
  Transmission Date: 20150721
  Serious: Yes (Death, Congenital Anomaly, Other)
  Sender: FDA-Public Use
  Company Number: DE-AUROBINDO-AUR-APL-2015-00244

PATIENT
  Sex: Female
  Weight: .24 kg

DRUGS (4)
  1. FOLSAEURE [Concomitant]
     Active Substance: FOLIC ACID
     Indication: PROPHYLAXIS OF NEURAL TUBE DEFECT
     Dosage: UNK
     Route: 064
     Dates: start: 20140515, end: 20140928
  2. METFORMIN [Suspect]
     Active Substance: METFORMIN HYDROCHLORIDE
     Indication: POLYCYSTIC OVARIES
  3. PREDNISOLON                        /00016201/ [Concomitant]
     Active Substance: PREDNISOLONE
     Indication: PROPHYLAXIS OF ABORTION
     Dosage: 2.5 MG, DAILY
     Route: 064
     Dates: start: 20140515, end: 20140815
  4. METFORMIN [Suspect]
     Active Substance: METFORMIN HYDROCHLORIDE
     Indication: INSULIN RESISTANCE
     Dosage: 1275 MG, DAILY
     Route: 064
     Dates: start: 20140515, end: 20140715

REACTIONS (9)
  - Aorta hypoplasia [Not Recovered/Not Resolved]
  - Mitral valve atresia [Not Recovered/Not Resolved]
  - Foetal death [Fatal]
  - Pulmonary hypoplasia [Not Recovered/Not Resolved]
  - Asplenia [Not Recovered/Not Resolved]
  - Hypoplastic left heart syndrome [Not Recovered/Not Resolved]
  - Congenital cystic kidney disease [Not Recovered/Not Resolved]
  - Congenital central nervous system anomaly [Unknown]
  - Foetal exposure during pregnancy [Unknown]
